FAERS Safety Report 9896835 (Version 1)
Quarter: 2014Q1

REPORT INFORMATION
  Report Type: Spontaneous
  Country: US (occurrence: US)
  Receive Date: 20140213
  Receipt Date: 20140213
  Transmission Date: 20141002
  Serious: Yes (Death)
  Sender: FDA-Public Use
  Company Number: US-ROCHE-1348067

PATIENT
  Sex: Male
  Weight: 94.43 kg

DRUGS (1)
  1. XELODA [Suspect]
     Indication: COLON CANCER
     Dosage: 3TBID, 3000 MG
     Route: 048
     Dates: start: 20140205

REACTIONS (1)
  - Death [Fatal]
